FAERS Safety Report 9915249 (Version 2)
Quarter: 2014Q2

REPORT INFORMATION
  Report Type: Spontaneous
  Country: US (occurrence: US)
  Receive Date: 20140221
  Receipt Date: 20140520
  Transmission Date: 20141212
  Serious: Yes (Other)
  Sender: FDA-Public Use
  Company Number: US-ROCHE-1353731

PATIENT
  Age: 85 Year
  Sex: Female

DRUGS (8)
  1. XELODA [Suspect]
     Indication: PANCREATIC CARCINOMA
     Route: 048
     Dates: start: 20140126
  2. ASPIRIN [Concomitant]
  3. LISINOPRIL [Concomitant]
  4. TOPROL XL [Concomitant]
  5. SYNTHROID [Concomitant]
  6. CREON [Concomitant]
  7. CELEXA (CANADA) [Concomitant]
  8. XANAX [Concomitant]

REACTIONS (2)
  - Vision blurred [Not Recovered/Not Resolved]
  - Abdominal discomfort [Unknown]
